FAERS Safety Report 4301783-1 (Version None)
Quarter: 2004Q1

REPORT INFORMATION
  Report Type: 
  Country: None (occurrence: None)
  Receive Date: 20040126
  Receipt Date: 20031006
  Transmission Date: 20041129
  Serious: No
  Sender: FDA-Public Use
  Company Number: USA031049147

PATIENT
  Age: 45 Year
  Sex: Female
  Weight: 82 kg

DRUGS (2)
  1. STRATTERA [Suspect]
     Indication: ATTENTION DEFICIT/HYPERACTIVITY DISORDER
     Dosage: 40 MG
     Dates: start: 20030701
  2. FLUOXETINE HCL [Concomitant]

REACTIONS (2)
  - DYSGEUSIA [None]
  - POSTMENOPAUSAL HAEMORRHAGE [None]
